FAERS Safety Report 4805946-8 (Version None)
Quarter: 2005Q4

REPORT INFORMATION
  Report Type: 
  Country: None (occurrence: None)
  Receive Date: 20051021
  Receipt Date: 20051011
  Transmission Date: 20060501
  Serious: Yes (Hospitalization, Disabling)
  Sender: FDA-Public Use
  Company Number: 2005PK01897

PATIENT
  Sex: Female

DRUGS (2)
  1. NAROPIN [Suspect]
     Indication: POSTOPERATIVE ANALGESIA
     Route: 008
     Dates: start: 20051007, end: 20051007
  2. NAROPIN [Suspect]
     Route: 008
     Dates: start: 20051007, end: 20051009

REACTIONS (2)
  - NEUROTOXICITY [None]
  - SPINAL CORD PARALYSIS [None]
